FAERS Safety Report 19414813 (Version 2)
Quarter: 2021Q2

REPORT INFORMATION
  Report Type: Spontaneous
  Country: JP (occurrence: JP)
  Receive Date: 20210615
  Receipt Date: 20210618
  Transmission Date: 20210717
  Serious: Yes (Hospitalization)
  Sender: FDA-Public Use
  Company Number: JP-TEVA-2021-JP-002849J

PATIENT
  Age: 85 Year
  Sex: Male

DRUGS (1)
  1. FENOFIBRATE TABLET 53.3MG  TAKEDA TEVA [Suspect]
     Active Substance: FENOFIBRATE
     Indication: PRODUCT USED FOR UNKNOWN INDICATION
     Dosage: 106.6 MILLIGRAM DAILY;
     Route: 048

REACTIONS (1)
  - Cholecystitis [Unknown]
